FAERS Safety Report 10060653 (Version 1)
Quarter: 2014Q2

REPORT INFORMATION
  Report Type: Report from Study
  Country: IN (occurrence: IN)
  Receive Date: 20140404
  Receipt Date: 20140404
  Transmission Date: 20141212
  Serious: Yes (Hospitalization, Other)
  Sender: FDA-Public Use
  Company Number: PHHY2014IN040024

PATIENT
  Age: 54 Year
  Sex: Male
  Weight: 55 kg

DRUGS (4)
  1. NEORAL [Suspect]
     Indication: TRANSPLANT
     Dosage: 25 MG, BID
     Route: 048
  2. NEORAL [Suspect]
     Dosage: 100 MG, BID
  3. FOLIC ACID [Concomitant]
     Dosage: UNK UKN, QD
     Route: 048
  4. LIVOGEN [Concomitant]
     Dosage: UNK UKN, QD
     Route: 048

REACTIONS (9)
  - Cough [Not Recovered/Not Resolved]
  - Swelling face [Not Recovered/Not Resolved]
  - Peripheral swelling [Not Recovered/Not Resolved]
  - Renal impairment [Not Recovered/Not Resolved]
  - Platelet count decreased [Not Recovered/Not Resolved]
  - Gingival bleeding [Not Recovered/Not Resolved]
  - Hepatic function abnormal [Not Recovered/Not Resolved]
  - Bone marrow disorder [Unknown]
  - General physical health deterioration [Unknown]
